FAERS Safety Report 4269241-0 (Version None)
Quarter: 2004Q1

REPORT INFORMATION
  Report Type: 
  Country: None (occurrence: None)
  Receive Date: 20040113
  Receipt Date: 20031208
  Transmission Date: 20041129
  Serious: Yes (Death, Life-Threatening)
  Sender: FDA-Public Use
  Company Number: FR-BRISTOL-MYERS SQUIBB COMPANY-12452694

PATIENT
  Age: 69 Year
  Sex: Male
  Weight: 55 kg

DRUGS (15)
  1. TAXOL [Suspect]
     Dosage: THERAPY DATES: 13-JUN TO 20-JUN-2003
     Route: 042
     Dates: start: 20030620, end: 20030620
  2. PREVISCAN [Concomitant]
  3. COZAAR [Concomitant]
  4. KARDEGIC [Concomitant]
  5. HEMIGOXINE NATIVELLE [Concomitant]
  6. NITROGLYCERIN [Concomitant]
  7. FUROSEMIDE [Concomitant]
  8. EPO [Concomitant]
     Dosage: EPO-10000
  9. STILNOX [Concomitant]
  10. OXYGEN [Concomitant]
  11. SOLU-MEDROL [Concomitant]
     Indication: PREMEDICATION
     Route: 042
  12. POLARAMINE [Concomitant]
     Indication: PREMEDICATION
     Route: 042
  13. NAVOBAN [Concomitant]
     Indication: PREMEDICATION
     Route: 042
  14. RANIPLEX [Concomitant]
     Indication: PREMEDICATION
     Route: 042
  15. SYNEDIL [Concomitant]
     Indication: PREMEDICATION
     Route: 048

REACTIONS (12)
  - CARDIAC FAILURE CONGESTIVE [None]
  - CARDIOGENIC SHOCK [None]
  - DEPRESSED LEVEL OF CONSCIOUSNESS [None]
  - HYPERTENSION [None]
  - MULTI-ORGAN FAILURE [None]
  - MYOCARDIAL INFARCTION [None]
  - OLIGURIA [None]
  - PULMONARY OEDEMA [None]
  - RENAL FAILURE [None]
  - RESPIRATORY DISTRESS [None]
  - RESPIRATORY FAILURE [None]
  - TACHYCARDIA [None]
